FAERS Safety Report 24713719 (Version 1)
Quarter: 2024Q4

REPORT INFORMATION
  Report Type: Spontaneous
  Country: US (occurrence: US)
  Receive Date: 20241209
  Receipt Date: 20241209
  Transmission Date: 20250114
  Serious: No
  Sender: REGENERON
  Company Number: US-REGENERON PHARMACEUTICALS, INC.-2024-052545

PATIENT
  Age: 81 Year
  Sex: Female

DRUGS (1)
  1. EYLEA [Suspect]
     Active Substance: AFLIBERCEPT
     Indication: Diabetic retinal oedema
     Dosage: 2 MG, EVERY 4-6 WEEKS, OS, STRENGTH: 40 MG/ML, (FORMULATION: UNKNOWN)
     Route: 031

REACTIONS (2)
  - Visual acuity reduced [Unknown]
  - Drug ineffective [Unknown]
